FAERS Safety Report 4679749-1 (Version None)
Quarter: 2005Q2

REPORT INFORMATION
  Report Type: 
  Country: None (occurrence: None)
  Receive Date: 20050602
  Receipt Date: 20030911
  Transmission Date: 20051028
  Serious: Yes (Death, Life-Threatening, Hospitalization)
  Sender: FDA-Public Use
  Company Number: FR-ROCHE-346772

PATIENT
  Age: 52 Year
  Sex: Female
  Weight: 83 kg

DRUGS (14)
  1. CAPECITABINE [Suspect]
     Indication: BREAST CANCER
     Route: 048
     Dates: start: 20030605, end: 20030614
  2. DOCETAXEL [Suspect]
     Indication: BREAST CANCER
     Dosage: ON DAY 1 OF A 21 DAY CYCLE.
     Route: 042
     Dates: start: 20030605
  3. DAFLON [Concomitant]
     Indication: VENOUS INSUFFICIENCY
  4. ENDOTELON [Concomitant]
     Indication: VENOUS INSUFFICIENCY
  5. CLARADOL [Concomitant]
  6. BECILAN [Concomitant]
  7. XANAX [Concomitant]
     Indication: ANXIETY
  8. FUNGIZONE [Concomitant]
     Indication: STOMATITIS
     Dates: start: 20030616
  9. ZOVIRAX [Concomitant]
     Indication: STOMATITIS
     Dates: start: 20030616
  10. XYLOCAINE [Concomitant]
     Indication: STOMATITIS
     Dates: start: 20030616
  11. OROPIVALONE [Concomitant]
     Indication: STOMATITIS
  12. HEXASPRAY [Concomitant]
     Indication: STOMATITIS
  13. LANZOR [Concomitant]
     Indication: STOMATITIS
  14. CORTANCYL [Concomitant]
     Indication: PROPHYLAXIS
     Route: 048
     Dates: start: 20030520, end: 20030606

REACTIONS (10)
  - DEHYDRATION [None]
  - DIARRHOEA [None]
  - GASTROINTESTINAL HAEMORRHAGE [None]
  - HERPETIC STOMATITIS [None]
  - HYPOVOLAEMIC SHOCK [None]
  - MALAISE [None]
  - PNEUMONIA ASPIRATION [None]
  - THROMBOCYTOPENIA [None]
  - VOMITING [None]
  - WEIGHT DECREASED [None]
